FAERS Safety Report 4439739-0 (Version None)
Quarter: 2004Q3

REPORT INFORMATION
  Report Type: 
  Country: None (occurrence: None)
  Receive Date: 20040902
  Receipt Date: 20040830
  Transmission Date: 20050211
  Serious: Yes (Death, Life-Threatening, Hospitalization, Disabling)
  Sender: FDA-Public Use
  Company Number: PHBS2004HR11446

PATIENT
  Age: 44 Year
  Sex: Male

DRUGS (1)
  1. LEPONEX [Suspect]
     Indication: POISONING DELIBERATE
     Dosage: UNK, ONCE/SINGLE
     Route: 048
     Dates: start: 20040814, end: 20040814

REACTIONS (2)
  - COMA [None]
  - POISONING [None]
